FAERS Safety Report 11774902 (Version 1)
Quarter: 2015Q4

REPORT INFORMATION
  Report Type: Spontaneous
  Country: US (occurrence: US)
  Receive Date: 20151124
  Receipt Date: 20151124
  Transmission Date: 20160304
  Serious: Yes (Death)
  Sender: FDA-Public Use
  Company Number: US-INCYTE CORPORATION-2015IN005208

PATIENT
  Sex: Female

DRUGS (3)
  1. JAKAFI [Suspect]
     Active Substance: RUXOLITINIB
     Indication: POLYCYTHAEMIA VERA
     Dosage: 15 MG, BID
     Route: 048
     Dates: start: 20150524, end: 20151006
  2. JAKAFI [Suspect]
     Active Substance: RUXOLITINIB
     Indication: MYELOFIBROSIS
     Dosage: 15 MG, BID, ALTERNATING WITH 1 TABLET IN THE MORNING AND 2 TABLETS IN THE EVENING
     Dates: start: 20151007
  3. NOXAFIL [Concomitant]
     Active Substance: POSACONAZOLE

REACTIONS (2)
  - Fatigue [Unknown]
  - Acute myeloid leukaemia [Fatal]
